FAERS Safety Report 5034713-8 (Version None)
Quarter: 2006Q2

REPORT INFORMATION
  Report Type: 
  Country: None (occurrence: None)
  Receive Date: 20060621
  Receipt Date: 20060612
  Transmission Date: 20061013
  Serious: Yes (Hospitalization, Other)
  Sender: FDA-Public Use
  Company Number: 224449

PATIENT
  Age: 74 Year
  Sex: Male
  Weight: 54 kg

DRUGS (2)
  1. MABTHERA (RITUXIMAB) CON FOR SOLUTION FOR INFUSION [Suspect]
     Indication: LYMPHOMA
     Dosage: 500 MG, INTRAVENOUS
     Route: 042
     Dates: start: 20060206
  2. CYCLOPHOSPHAMIDE [Concomitant]

REACTIONS (1)
  - INTERSTITIAL LUNG DISEASE [None]
